FAERS Safety Report 7466026-9 (Version None)
Quarter: 2011Q2

REPORT INFORMATION
  Report Type: 
  Country: None (occurrence: None)
  Receive Date: 20110509
  Receipt Date: 20100705
  Transmission Date: 20111010
  Serious: Yes (Death, Hospitalization)
  Sender: FDA-Public Use
  Company Number: US-ALEXION-A201000516

PATIENT
  Age: 82 Year
  Sex: Female

DRUGS (12)
  1. CALTRATE                           /00108001/ [Concomitant]
  2. SOLIRIS [Suspect]
     Indication: PAROXYSMAL NOCTURNAL HAEMOGLOBINURIA
     Dosage: 600 MG, QWK
     Route: 042
     Dates: start: 20070604, end: 20070625
  3. FOLIC ACID [Concomitant]
  4. LEXAPRO [Concomitant]
  5. EXELON [Concomitant]
  6. NAMENDA [Concomitant]
  7. TOPROL-XL [Concomitant]
  8. MIRAPEX [Concomitant]
  9. ZOCOR [Concomitant]
  10. PREVACID [Concomitant]
  11. MIRALAX [Concomitant]
  12. SOLIRIS [Suspect]
     Dosage: 900 MG, Q2WKS
     Route: 042
     Dates: start: 20070709, end: 20100409

REACTIONS (2)
  - CARDIAC TAMPONADE [None]
  - LUNG ADENOCARCINOMA [None]
